FAERS Safety Report 7456400-9 (Version None)
Quarter: 2011Q1

REPORT INFORMATION
  Report Type: 
  Country: None (occurrence: None)
  Receive Date: 20110302
  Receipt Date: 20101115
  Transmission Date: 20110831
  Serious: Yes (Hospitalization)
  Sender: FDA-Public Use
  Company Number: 019258

PATIENT
  Sex: Female
  Weight: 47.6 kg

DRUGS (3)
  1. AMBIEN [Concomitant]
  2. METHOTREXATE [Concomitant]
  3. CIMZIA [Suspect]
     Indication: CROHN'S DISEASE
     Dosage: 200 MG 1X/2 WEEKS SUBCUTANEOUS
     Route: 058
     Dates: start: 20100730

REACTIONS (5)
  - ABDOMINAL PAIN [None]
  - NAUSEA [None]
  - VOMITING [None]
  - INTESTINAL OBSTRUCTION [None]
  - ABDOMINAL DISTENSION [None]
